FAERS Safety Report 20516525 (Version 2)
Quarter: 2022Q1

REPORT INFORMATION
  Report Type: Report from Study
  Country: BR (occurrence: BR)
  Receive Date: 20220225
  Receipt Date: 20220331
  Transmission Date: 20220423
  Serious: Yes (Disabling, Other)
  Sender: FDA-Public Use
  Company Number: BR-ABBVIE-22K-020-4290362-00

PATIENT
  Age: 65 Year
  Sex: Female
  Weight: 65 kg

DRUGS (2)
  1. RINVOQ [Suspect]
     Active Substance: UPADACITINIB
     Indication: Rheumatoid arthritis
     Route: 048
     Dates: start: 20210808
  2. RINVOQ [Suspect]
     Active Substance: UPADACITINIB
     Route: 048

REACTIONS (5)
  - Gait inability [Recovered/Resolved]
  - Foot operation [Recovering/Resolving]
  - Foot deformity [Recovering/Resolving]
  - Pain in extremity [Recovering/Resolving]
  - Arthritis [Unknown]

NARRATIVE: CASE EVENT DATE: 20220124
